FAERS Safety Report 11422998 (Version 4)
Quarter: 2016Q1

REPORT INFORMATION
  Report Type: Spontaneous
  Country: US (occurrence: US)
  Receive Date: 20150827
  Receipt Date: 20160104
  Transmission Date: 20160525
  Serious: Yes (Death, Hospitalization)
  Sender: FDA-Public Use
  Company Number: US-PFIZER INC-2015277300

PATIENT
  Age: 66 Year
  Sex: Male
  Weight: 91 kg

DRUGS (10)
  1. ENALAPRIL [Concomitant]
     Active Substance: ENALAPRIL
     Indication: CARDIAC DISORDER
  2. XALKORI [Suspect]
     Active Substance: CRIZOTINIB
     Dosage: 250 MG, 2X/DAY
     Dates: start: 20150625, end: 20150708
  3. AMLODIPINE BESYLATE. [Concomitant]
     Active Substance: AMLODIPINE BESYLATE
     Indication: HYPERTENSION
     Dosage: 5 MG, DAILY
  4. NORVASC [Concomitant]
     Active Substance: AMLODIPINE BESYLATE
     Indication: BLOOD CHOLESTEROL
  5. XALKORI [Suspect]
     Active Substance: CRIZOTINIB
     Indication: OROPHARYNGEAL CANCER
     Dosage: 250 MG TWICE A DAY
     Route: 048
     Dates: start: 20150617, end: 20151130
  6. XALKORI [Suspect]
     Active Substance: CRIZOTINIB
     Dosage: UNK
     Dates: start: 20151006
  7. ENALAPRIL [Concomitant]
     Active Substance: ENALAPRIL
     Indication: BLOOD PRESSURE MEASUREMENT
     Dosage: 20 MG, 2X/DAY
  8. XALKORI [Suspect]
     Active Substance: CRIZOTINIB
     Indication: SKIN CANCER
     Dosage: 250 MG, 2X/DAY
     Route: 048
     Dates: start: 20150630, end: 20150708
  9. ENALAPRIL [Concomitant]
     Active Substance: ENALAPRIL
     Indication: HYPERTENSION
     Dosage: 10 MG, DAILY
  10. NORVASC [Concomitant]
     Active Substance: AMLODIPINE BESYLATE
     Indication: BLOOD PRESSURE MEASUREMENT
     Dosage: 5 MG, 1X/DAY

REACTIONS (5)
  - Cardiac failure [Fatal]
  - Product use issue [Unknown]
  - Generalised oedema [Fatal]
  - Staphylococcal sepsis [Fatal]
  - Device related infection [Unknown]

NARRATIVE: CASE EVENT DATE: 20150714
